FAERS Safety Report 22639915 (Version 2)
Quarter: 2024Q4

REPORT INFORMATION
  Report Type: Spontaneous
  Country: BR (occurrence: BR)
  Receive Date: 20230626
  Receipt Date: 20241220
  Transmission Date: 20250115
  Serious: No
  Sender: CELLTRION
  Company Number: BR-CELLTRION INC.-2023BR012637

PATIENT

DRUGS (9)
  1. TRUXIMA [Suspect]
     Active Substance: RITUXIMAB-ABBS
     Indication: Overlap syndrome
     Dosage: 4 AMPOULES (ATTACK DOSE)(NOT YET START; WILL DO THE FIRSTUNFUSION ON 03 JUL 2023)
     Route: 042
  2. TRUXIMA [Suspect]
     Active Substance: RITUXIMAB-ABBS
     Dosage: EVERY 6 MONTHS (AFTER ATTACK DOSE)
     Route: 042
  3. METHOTREXATE [Concomitant]
     Active Substance: METHOTREXATE
     Indication: Overlap syndrome
     Dosage: 10 PILLS ONCE A WEEK
  4. FOLIC ACID [Concomitant]
     Active Substance: FOLIC ACID
     Indication: Overlap syndrome
     Dosage: 1 PILL A DAY
  5. AZATHIOPRINE [Concomitant]
     Active Substance: AZATHIOPRINE
     Indication: Overlap syndrome
     Dosage: 2 PILLS A DAY
  6. PREDSIM [PREDNISOLONE] [Concomitant]
     Indication: Overlap syndrome
     Dosage: 13 DROPS A DAY
  7. PROPRANOLOL HYDROCHLORIDE [Concomitant]
     Active Substance: PROPRANOLOL HYDROCHLORIDE
     Indication: Arrhythmia
     Dosage: 40 MG
  8. ASPIRIN [Concomitant]
     Active Substance: ASPIRIN
     Indication: Thrombosis
     Dosage: 1 PILL A DAY
  9. CHOLECALCIFEROL [Concomitant]
     Active Substance: CHOLECALCIFEROL
     Indication: Supplementation therapy
     Dosage: 1 PILL A DAY

REACTIONS (1)
  - Off label use [Unknown]
